FAERS Safety Report 7860410-7 (Version None)
Quarter: 2011Q4

REPORT INFORMATION
  Report Type: 
  Country: None (occurrence: None)
  Receive Date: 20111027
  Receipt Date: 20111018
  Transmission Date: 20120403
  Serious: Yes (Other)
  Sender: FDA-Public Use
  Company Number: PHHY2011DE93044

PATIENT
  Sex: Male
  Weight: 70 kg

DRUGS (4)
  1. CALCIUM CARBONATE [Concomitant]
     Dosage: 500 MG PER DAY
     Route: 048
  2. ZOMETA [Suspect]
     Indication: BONE DISORDER
     Dosage: 4 MG EVERY 4 WEEKS
     Route: 042
     Dates: start: 20110726, end: 20110726
  3. VITAMIN D [Concomitant]
     Dosage: 400 I.E. PER DAY
     Route: 048
  4. MARCUMAR [Concomitant]
     Dosage: 1
     Dates: start: 20060101

REACTIONS (3)
  - CARDIAC FAILURE [None]
  - VEIN DISORDER [None]
  - RENAL FAILURE [None]
